FAERS Safety Report 8108224-7 (Version None)
Quarter: 2012Q1

REPORT INFORMATION
  Report Type: 
  Country: None (occurrence: None)
  Receive Date: 20120202
  Receipt Date: 20120131
  Transmission Date: 20120608
  Serious: Yes (Hospitalization)
  Sender: FDA-Public Use
  Company Number: US-GLAXOSMITHKLINE-A0964246A

PATIENT
  Age: 45 Year
  Sex: Male
  Weight: 66.6 kg

DRUGS (1)
  1. OFATUMUMAB [Suspect]
     Indication: B-CELL LYMPHOMA
     Dosage: 1000MG WEEKLY
     Route: 042
     Dates: start: 20111215

REACTIONS (1)
  - HEPATIC HAEMORRHAGE [None]
